FAERS Safety Report 5822921-5 (Version None)
Quarter: 2008Q3

REPORT INFORMATION
  Report Type: 
  Country: None (occurrence: None)
  Receive Date: 20080724
  Receipt Date: 20080724
  Transmission Date: 20090109
  Serious: Yes (Other)
  Sender: FDA-Public Use
  Company Number: None

PATIENT
  Sex: Female
  Weight: 136.0791 kg

DRUGS (1)
  1. REMERON [Suspect]
     Indication: DEPRESSION
     Dosage: ? 1 X DAILY MOUTH
     Route: 048
     Dates: start: 19960101, end: 19990101

REACTIONS (2)
  - CONDITION AGGRAVATED [None]
  - DEPRESSION [None]
